FAERS Safety Report 19068826 (Version 1)
Quarter: 2021Q1

REPORT INFORMATION
  Report Type: Spontaneous
  Country: US (occurrence: US)
  Receive Date: 20210329
  Receipt Date: 20210329
  Transmission Date: 20210420
  Serious: Yes (Death, Other)
  Sender: FDA-Public Use
  Company Number: US-KYOWAKIRIN-2021BKK004896

PATIENT

DRUGS (2)
  1. NOURIANZ [Suspect]
     Active Substance: ISTRADEFYLLINE
     Indication: HALLUCINATION, VISUAL
     Dosage: 20 MG, ONCE DAILY
     Route: 048
     Dates: start: 20201123
  2. NOURIANZ [Suspect]
     Active Substance: ISTRADEFYLLINE
     Indication: DEMENTIA ALZHEIMER^S TYPE

REACTIONS (2)
  - Product use in unapproved indication [Unknown]
  - Death [Fatal]

NARRATIVE: CASE EVENT DATE: 20201123
